FAERS Safety Report 7720650-4 (Version None)
Quarter: 2011Q3

REPORT INFORMATION
  Report Type: 
  Country: None (occurrence: None)
  Receive Date: 20110831
  Receipt Date: 20110822
  Transmission Date: 20111222
  Serious: Yes (Hospitalization, Other)
  Sender: FDA-Public Use
  Company Number: PHEH2009US16949

PATIENT
  Sex: Female

DRUGS (10)
  1. PREMARIN [Concomitant]
  2. AREDIA [Suspect]
  3. CALCIUM CARBONATE [Concomitant]
  4. ZOFRAN [Concomitant]
  5. DEMEROL [Concomitant]
  6. DYAZIDE [Concomitant]
  7. ULTRAM [Concomitant]
  8. LORTAB [Concomitant]
  9. PRILOSEC [Concomitant]
  10. FEMARA [Concomitant]

REACTIONS (15)
  - OSTEOPOROSIS [None]
  - LIPOMA [None]
  - ARTHRALGIA [None]
  - OSTEOPENIA [None]
  - DECREASED INTEREST [None]
  - BREAST CANCER [None]
  - INJURY [None]
  - PAIN [None]
  - FIBROMYALGIA [None]
  - BRONCHITIS [None]
  - HYPERTONIC BLADDER [None]
  - OSTEONECROSIS OF JAW [None]
  - ANXIETY [None]
  - STRESS FRACTURE [None]
  - CHEST PAIN [None]
